FAERS Safety Report 21639358 (Version 1)
Quarter: 2022Q4

REPORT INFORMATION
  Report Type: Report from Study
  Country: US (occurrence: US)
  Receive Date: 20221124
  Receipt Date: 20221124
  Transmission Date: 20230112
  Serious: Yes (Other)
  Sender: FDA-Public Use
  Company Number: US-ABBVIE-22K-163-4521803-00

PATIENT
  Age: 63 Year
  Sex: Male

DRUGS (2)
  1. IMBRUVICA [Suspect]
     Active Substance: IBRUTINIB
     Indication: Chronic lymphocytic leukaemia
     Route: 048
     Dates: start: 20220815
  2. IMBRUVICA [Suspect]
     Active Substance: IBRUTINIB
     Indication: Chronic lymphocytic leukaemia
     Route: 048

REACTIONS (7)
  - Basal cell carcinoma [Unknown]
  - Diarrhoea [Unknown]
  - Headache [Unknown]
  - Oropharyngeal pain [Unknown]
  - Stomatitis [Recovering/Resolving]
  - Blood test abnormal [Unknown]
  - Dyspepsia [Recovering/Resolving]

NARRATIVE: CASE EVENT DATE: 20220801
